FAERS Safety Report 8629785 (Version 5)
Quarter: 2012Q4

REPORT INFORMATION
  Report Type: Report from Study
  Country: US (occurrence: US)
  Receive Date: 20120622
  Receipt Date: 20120922
  Transmission Date: 20130627
  Serious: Yes (Death)
  Sender: FDA-Public Use
  Company Number: US-ABBOTT-12P-163-0947277-00

PATIENT
  Age: 72 None
  Sex: Male
  Weight: 65.83 kg

DRUGS (14)
  1. HUMIRA 40 MG/0.8 ML PEN [Suspect]
     Indication: CROHN^S DISEASE
     Dosage: (160 mg, loading dose)
     Dates: start: 20120525, end: 20120525
  2. HUMIRA 40 MG/0.8 ML PEN [Suspect]
     Dosage: (80 mg, second loading dose)
     Dates: start: 20120608, end: 20120608
  3. IV STEROIDS [Suspect]
  4. MERCAPTOPURINE [Concomitant]
     Indication: CROHN^S DISEASE
     Route: 048
     Dates: start: 20120504, end: 201206
  5. PREDNISONE [Concomitant]
     Indication: CROHN^S DISEASE
     Dates: start: 201204, end: 201206
  6. ASACOL [Concomitant]
     Indication: CROHN^S DISEASE
     Dates: end: 201206
  7. ASACOL [Concomitant]
  8. NEXIUM [Concomitant]
     Indication: GASTROOESOPHAGEAL REFLUX DISEASE
     Dates: end: 201206
  9. LIPITOR [Concomitant]
     Indication: BLOOD CHOLESTEROL INCREASED
     Dates: end: 201206
  10. MULTIVITAMIN [Concomitant]
     Indication: VITAMIN SUPPLEMENTATION
     Route: 048
     Dates: end: 201206
  11. VITAMIN D [Concomitant]
     Indication: VITAMIN SUPPLEMENTATION
     Dosage: 50,000 units/week
     Dates: end: 201206
  12. FERROUS SULFATE [Concomitant]
     Indication: MINERAL SUPPLEMENTATION
     Dates: end: 201206
  13. CAVASA SUPPOSITORIES [Concomitant]
     Indication: PRODUCT USED FOR UNKNOWN INDICATION
     Route: 054
  14. FLORASTOR [Concomitant]
     Route: 048

REACTIONS (9)
  - Respiratory arrest [Fatal]
  - Crohn^s disease [Fatal]
  - Diverticulitis [Fatal]
  - Painful defaecation [Not Recovered/Not Resolved]
  - Dyspnoea [Fatal]
  - Cardiac disorder [Fatal]
  - Diarrhoea [Unknown]
  - Transaminases increased [Unknown]
  - Vitamin D deficiency [Unknown]
